FAERS Safety Report 25733098 (Version 1)
Quarter: 2025Q3

REPORT INFORMATION
  Report Type: Report from Study
  Country: US (occurrence: US)
  Receive Date: 20250828
  Receipt Date: 20250828
  Transmission Date: 20251020
  Serious: Yes (Other)
  Sender: ABBVIE
  Company Number: US-ABBVIE-6428347

PATIENT
  Age: 40 Year
  Sex: Male

DRUGS (1)
  1. HUMIRA [Suspect]
     Active Substance: ADALIMUMAB
     Indication: Hidradenitis
     Route: 058

REACTIONS (4)
  - Loss of consciousness [Unknown]
  - Arteriovenous malformation [Recovering/Resolving]
  - Limb discomfort [Unknown]
  - Gait disturbance [Unknown]

NARRATIVE: CASE EVENT DATE: 20080312
